FAERS Safety Report 23116606 (Version 1)
Quarter: 2023Q4

REPORT INFORMATION
  Report Type: Spontaneous
  Country: US (occurrence: US)
  Receive Date: 20231027
  Receipt Date: 20231027
  Transmission Date: 20240109
  Serious: Yes (Other)
  Sender: FDA-Public Use
  Company Number: US-REGENERON PHARMACEUTICALS, INC.-2023-129864

PATIENT
  Sex: Female

DRUGS (2)
  1. PRALUENT [Suspect]
     Active Substance: ALIROCUMAB
     Indication: Hypercholesterolaemia
     Dosage: 75 MG, Q2W
     Route: 058
     Dates: start: 202309, end: 202310
  2. INFLUENZA VIRUS VACCINE [Concomitant]
     Active Substance: INFLUENZA VIRUS VACCINE
     Indication: Product used for unknown indication
     Dosage: UNK
     Route: 065
     Dates: start: 2023

REACTIONS (8)
  - Arteriosclerosis [Unknown]
  - Memory impairment [Unknown]
  - Aphonia [Unknown]
  - Illness [Unknown]
  - Asthma [Unknown]
  - Laryngitis [Unknown]
  - Ear congestion [Unknown]
  - Influenza [Unknown]

NARRATIVE: CASE EVENT DATE: 20230101
